FAERS Safety Report 4768980-2 (Version None)
Quarter: 2005Q3

REPORT INFORMATION
  Report Type: 
  Country: None (occurrence: None)
  Receive Date: 20050914
  Receipt Date: 20050905
  Transmission Date: 20060218
  Serious: Yes (Life-Threatening, Other)
  Sender: FDA-Public Use
  Company Number: S05-UKI-02358-01

PATIENT
  Age: 59 Year
  Sex: Female

DRUGS (10)
  1. CIPRALEX (ESCITALOPRAM) [Suspect]
     Indication: ANXIETY
     Dosage: 5 MG QD PO
     Route: 048
     Dates: start: 20050506, end: 20050508
  2. CIPRALEX (ESCITALOPRAM) [Suspect]
     Indication: DEPRESSION
     Dosage: 5 MG QD PO
     Route: 048
     Dates: start: 20050506, end: 20050508
  3. CLOPIDOGREL [Suspect]
     Dosage: 75 MG QD PO
     Route: 048
  4. ASPIRIN [Suspect]
     Dosage: 75 MG QD PO
     Route: 048
  5. SALMETEROL [Concomitant]
  6. TERBUTALINE [Concomitant]
  7. LEKOVIT CA [Concomitant]
  8. TIOTROPIUM BROMIDE (TIOTROPIUM BROMIDE) [Concomitant]
  9. ATORVASTATIN [Concomitant]
  10. PANTOPRAZOLE [Concomitant]

REACTIONS (2)
  - INTRACRANIAL ANEURYSM [None]
  - SUBARACHNOID HAEMORRHAGE [None]
